FAERS Safety Report 7462305-X (Version None)
Quarter: 2011Q2

REPORT INFORMATION
  Report Type: 
  Country: None (occurrence: None)
  Receive Date: 20110506
  Receipt Date: 20110426
  Transmission Date: 20111010
  Serious: Yes (Other)
  Sender: FDA-Public Use
  Company Number: SI-AMGEN-SVNSP2011022296

PATIENT
  Sex: Male

DRUGS (1)
  1. ENBREL [Suspect]
     Indication: RHEUMATOID ARTHRITIS
     Dosage: UNK, FOR 10 WEEKS
     Dates: start: 20110101, end: 20110101

REACTIONS (2)
  - EYE MOVEMENT DISORDER [None]
  - DIPLOPIA [None]
